FAERS Safety Report 14706676 (Version 1)
Quarter: 2018Q2

REPORT INFORMATION
  Report Type: Spontaneous
  Country: US (occurrence: US)
  Receive Date: 20180402
  Receipt Date: 20180402
  Transmission Date: 20180711
  Serious: Yes (Hospitalization, Other)
  Sender: FDA-Public Use
  Company Number: US-MYLANLABS-2018M1019557

PATIENT
  Age: 48 Year
  Sex: Female
  Weight: 119 kg

DRUGS (1)
  1. GLATIRAMER ACETATE INJECTION [Suspect]
     Active Substance: GLATIRAMER ACETATE
     Indication: MULTIPLE SCLEROSIS
     Dosage: 40 MG, 3XW
     Route: 058

REACTIONS (7)
  - Acne pustular [Not Recovered/Not Resolved]
  - Drug dose omission [Unknown]
  - Fatigue [Recovering/Resolving]
  - Rash pruritic [Not Recovered/Not Resolved]
  - Multiple sclerosis relapse [Recovering/Resolving]
  - Rash generalised [Not Recovered/Not Resolved]
  - Wound infection staphylococcal [Not Recovered/Not Resolved]

NARRATIVE: CASE EVENT DATE: 201710
